FAERS Safety Report 6163932-2 (Version None)
Quarter: 2009Q2

REPORT INFORMATION
  Report Type: 
  Country: None (occurrence: None)
  Receive Date: 20090422
  Receipt Date: 20090415
  Transmission Date: 20091009
  Serious: Yes (Death, Other)
  Sender: FDA-Public Use
  Company Number: PHHY2008CA10612

PATIENT
  Sex: Female

DRUGS (1)
  1. DIOVAN T30230++HY [Suspect]
     Indication: HYPERTENSION
     Dosage: 160/25 MG
     Route: 048
     Dates: start: 20070925, end: 20071001

REACTIONS (5)
  - ASTHENIA [None]
  - BLOOD PRESSURE INCREASED [None]
  - DRUG ADMINISTRATION ERROR [None]
  - DRUG INEFFECTIVE [None]
  - VULVAL CANCER [None]
